FAERS Safety Report 12626898 (Version 2)
Quarter: 2016Q3

REPORT INFORMATION
  Report Type: Report from Study
  Country: US (occurrence: US)
  Receive Date: 20160805
  Receipt Date: 20160815
  Transmission Date: 20161109
  Serious: Yes (Other)
  Sender: FDA-Public Use
  Company Number: US-ABBVIE-16K-163-1688210-00

PATIENT
  Sex: Male
  Weight: 86.26 kg

DRUGS (1)
  1. HUMIRA [Suspect]
     Active Substance: ADALIMUMAB
     Indication: PSORIASIS
     Route: 058
     Dates: start: 201601

REACTIONS (16)
  - Psoriasis [Recovered/Resolved]
  - Pain in extremity [Recovering/Resolving]
  - Skin haemorrhage [Not Recovered/Not Resolved]
  - Back pain [Recovering/Resolving]
  - Pain [Recovering/Resolving]
  - Frustration tolerance decreased [Unknown]
  - Insomnia [Not Recovered/Not Resolved]
  - Pruritus generalised [Not Recovered/Not Resolved]
  - Blister [Recovering/Resolving]
  - Suicidal ideation [Not Recovered/Not Resolved]
  - Drug ineffective [Not Recovered/Not Resolved]
  - Wound complication [Not Recovered/Not Resolved]
  - Blood blister [Not Recovered/Not Resolved]
  - Psoriasis [Recovering/Resolving]
  - Wound [Recovering/Resolving]
  - Skin abrasion [Unknown]

NARRATIVE: CASE EVENT DATE: 2016
